FAERS Safety Report 10253055 (Version 3)
Quarter: 2014Q3

REPORT INFORMATION
  Report Type: Spontaneous
  Country: DE (occurrence: DE)
  Receive Date: 20140623
  Receipt Date: 20140715
  Transmission Date: 20150326
  Serious: Yes (Disabling, Other)
  Sender: FDA-Public Use
  Company Number: DE-ABBVIE-14P-062-1243974-00

PATIENT
  Age: 68 Year
  Sex: Female
  Weight: 50 kg

DRUGS (3)
  1. CHEMOTHERAPEUTICS [Concomitant]
     Active Substance: UNSPECIFIED INGREDIENT
     Indication: PRODUCT USED FOR UNKNOWN INDICATION
     Dosage: 10X CHEMOTHERAPY
     Dates: start: 200905, end: 200907
  2. KREON (GRANULAT, 25.000, 40.000) [Suspect]
     Active Substance: PANCRELIPASE
     Indication: PRODUCT USED FOR UNKNOWN INDICATION
     Dosage: UP TO 200.000 UNITS, MORNINGS:25.000, NOON:80.000, EVENINGS:2X25.000, AFTERNOONS:25.000
     Dates: start: 200912
  3. ACE INHIBITORS [Concomitant]
     Active Substance: UNSPECIFIED INGREDIENT
     Indication: PRODUCT USED FOR UNKNOWN INDICATION

REACTIONS (5)
  - Tooth extraction [Unknown]
  - Gingivitis [Recovered/Resolved with Sequelae]
  - Wrong technique in drug usage process [Unknown]
  - Tooth injury [Unknown]
  - Dental caries [Unknown]

NARRATIVE: CASE EVENT DATE: 200908
